FAERS Safety Report 8816013 (Version 4)
Quarter: 2012Q4

REPORT INFORMATION
  Report Type: 
  Country: SI (occurrence: SI)
  Receive Date: 20120928
  Receipt Date: 20121019
  Transmission Date: 20130627
  Serious: Yes (Hospitalization, Disabling, Other)
  Sender: FDA-Public Use
  Company Number: SI-B.I. PHARMACEUTICALS,INC./RIDGEFIELD-2012-AP-00800AP

PATIENT
  Age: 76 Year
  Sex: Male
  Weight: 178 kg

DRUGS (12)
  1. PRADAXA [Suspect]
     Indication: ATRIAL FIBRILLATION
     Dosage: 300 mg
     Route: 048
     Dates: start: 20120922, end: 20120922
  2. PRADAXA [Suspect]
     Indication: CARDIAC FAILURE
  3. PRADAXA [Suspect]
     Indication: TRANSIENT ISCHAEMIC ATTACK
  4. ASPIRIN [Concomitant]
     Indication: ATRIAL FIBRILLATION
     Dates: end: 20120921
  5. PIRAMIL, [PIRAMIL H] [Concomitant]
     Indication: HYPERTENSION
     Dosage: 5 mg
  6. PIRAMIL, [PIRAMIL H] [Concomitant]
     Indication: CARDIAC FAILURE
  7. [PIRAMIL,] PIRAMIL H [Concomitant]
     Indication: HYPERTENSION
     Dosage: 5 mg
  8. [PIRAMIL,] PIRAMIL H [Concomitant]
     Indication: CARDIAC FAILURE
  9. BERODUAL, [SERETIDE] [Concomitant]
     Indication: CHRONIC OBSTRUCTIVE PULMONARY DISEASE
  10. [BERODUAL,] SERETIDE [Concomitant]
     Indication: CHRONIC OBSTRUCTIVE PULMONARY DISEASE
  11. LANITOP [Concomitant]
     Indication: ATRIAL FIBRILLATION
     Dosage: 0.1 mg
  12. CLEXAN [Concomitant]
     Indication: TRANSIENT ISCHAEMIC ATTACK
     Dosage: 40mg sc/24h
     Dates: start: 20120919, end: 20120921

REACTIONS (5)
  - Ischaemic stroke [Recovered/Resolved]
  - Hemiplegia [Not Recovered/Not Resolved]
  - Dysarthria [Unknown]
  - Chronic obstructive pulmonary disease [Recovered/Resolved]
  - Bronchitis [Recovered/Resolved]
